FAERS Safety Report 7701553-8 (Version None)
Quarter: 2011Q3

REPORT INFORMATION
  Report Type: 
  Country: None (occurrence: None)
  Receive Date: 20110822
  Receipt Date: 20110817
  Transmission Date: 20111222
  Serious: Yes (Hospitalization)
  Sender: FDA-Public Use
  Company Number: SE-BRISTOL-MYERS SQUIBB COMPANY-15985781

PATIENT
  Age: 33 Year
  Sex: Male

DRUGS (4)
  1. OCUTEARS [Concomitant]
     Dates: start: 20110315, end: 20110315
  2. CYCLOPENTOLATE HCL [Concomitant]
     Route: 047
     Dates: start: 20110315, end: 20110315
  3. MITOMYCIN [Suspect]
     Indication: OFF LABEL USE
     Dosage: INJ 2MG DILUTED WITH 10ML STERILE WATER FOR 10SEC
     Route: 047
     Dates: start: 20110315, end: 20110315
  4. TOBRAMYCIN-DEXAMETHASONE [Concomitant]
     Route: 047
     Dates: start: 20110315, end: 20110315

REACTIONS (1)
  - KERATITIS [None]
